FAERS Safety Report 6294205-5 (Version None)
Quarter: 2009Q3

REPORT INFORMATION
  Report Type: 
  Country: None (occurrence: None)
  Receive Date: 20090803
  Receipt Date: 20090227
  Transmission Date: 20100115
  Serious: No
  Sender: FDA-Public Use
  Company Number: A0770871A

PATIENT
  Age: 36 Year
  Sex: Male

DRUGS (1)
  1. NICORETTE [Suspect]
     Dates: start: 20090216, end: 20090216

REACTIONS (2)
  - ERUCTATION [None]
  - NAUSEA [None]
